FAERS Safety Report 6110355-8 (Version None)
Quarter: 2009Q1

REPORT INFORMATION
  Report Type: 
  Country: None (occurrence: None)
  Receive Date: 20090310
  Receipt Date: 20090227
  Transmission Date: 20090719
  Serious: Yes (Other)
  Sender: FDA-Public Use
  Company Number: SE-JNJFOC-20060903509

PATIENT
  Age: 34 Year
  Sex: Female

DRUGS (3)
  1. TOPAMAX [Suspect]
     Dosage: IN 1ST TRIMESTER
     Route: 048
  2. TOPAMAX [Suspect]
     Indication: GRAND MAL CONVULSION
     Route: 048
  3. LAMICTAL [Suspect]
     Indication: GRAND MAL CONVULSION
     Route: 048

REACTIONS (2)
  - DRUG EXPOSURE DURING PREGNANCY [None]
  - PREMATURE LABOUR [None]
